FAERS Safety Report 13840960 (Version 4)
Quarter: 2017Q4

REPORT INFORMATION
  Report Type: Spontaneous
  Country: AR (occurrence: AR)
  Receive Date: 20170807
  Receipt Date: 20171114
  Transmission Date: 20180320
  Serious: Yes (Other)
  Sender: FDA-Public Use
  Company Number: AR-PFIZER INC-2017339835

PATIENT
  Age: 58 Year
  Sex: Male

DRUGS (3)
  1. PAMIDRONATO [Concomitant]
     Active Substance: PAMIDRONATE DISODIUM
     Indication: BONE DISORDER
     Dosage: UNK
  2. SUTENT [Suspect]
     Active Substance: SUNITINIB MALATE
     Indication: METASTATIC RENAL CELL CARCINOMA
     Dosage: 50 MG, CYCLIC (DAILY (4/2 SCHEME)
     Dates: start: 20170223
  3. SUTENT [Suspect]
     Active Substance: SUNITINIB MALATE
     Dosage: 1 DF, CYCLIC (DAILY, 28 DAYS ON TREATMENT AND 15 DAYS OFF)

REACTIONS (26)
  - Blood pressure decreased [Recovering/Resolving]
  - Dry skin [Not Recovered/Not Resolved]
  - Stomatitis [Not Recovered/Not Resolved]
  - Skin injury [Not Recovered/Not Resolved]
  - Burning sensation [Unknown]
  - Decreased immune responsiveness [Recovered/Resolved]
  - Limb injury [Unknown]
  - Blood pressure increased [Recovering/Resolving]
  - Decreased appetite [Not Recovered/Not Resolved]
  - Loose tooth [Not Recovered/Not Resolved]
  - Loss of personal independence in daily activities [Unknown]
  - Malaise [Recovering/Resolving]
  - Gastric disorder [Not Recovered/Not Resolved]
  - Vomiting [Not Recovered/Not Resolved]
  - Skin discolouration [Recovering/Resolving]
  - Infected skin ulcer [Recovered/Resolved]
  - Weight decreased [Not Recovered/Not Resolved]
  - Hypersensitivity [Recovering/Resolving]
  - Localised infection [Recovered/Resolved]
  - Pain [Unknown]
  - Erysipelas [Recovered/Resolved]
  - Skin disorder [Recovered/Resolved]
  - Skin exfoliation [Not Recovered/Not Resolved]
  - Nausea [Not Recovered/Not Resolved]
  - Skin fissures [Not Recovered/Not Resolved]
  - Eczema [Not Recovered/Not Resolved]

NARRATIVE: CASE EVENT DATE: 201702
